FAERS Safety Report 18678199 (Version 1)
Quarter: 2020Q4

REPORT INFORMATION
  Report Type: Other
  Country: CA (occurrence: CA)
  Receive Date: 20201230
  Receipt Date: 20201230
  Transmission Date: 20210114
  Serious: Yes (Other)
  Sender: FDA-Public Use
  Company Number: CA-CELLTRION INC.-2020CA034566

PATIENT

DRUGS (29)
  1. ADVIL COLD AND SINUS PLUS [Concomitant]
     Active Substance: CHLORPHENIRAMINE MALEATE\IBUPROFEN\PSEUDOEPHEDRINE HYDROCHLORIDE
     Indication: HYPERSENSITIVITY
     Route: 065
  2. CETIRIZINE HYDROCHLORIDE. [Concomitant]
     Active Substance: CETIRIZINE HYDROCHLORIDE
     Route: 065
  3. RITUXIMAB (UNKNOWN) [Suspect]
     Active Substance: RITUXIMAB
     Indication: RHEUMATOID ARTHRITIS
     Dosage: 1000 MILLIGRAM
     Route: 042
  4. NAPROXEN. [Concomitant]
     Active Substance: NAPROXEN
     Route: 065
  5. CORTISONE [Concomitant]
     Active Substance: CORTISONE
     Route: 065
  6. ESTER C [ASCORBIC ACID] [Concomitant]
     Active Substance: ASCORBIC ACID
     Route: 065
  7. PROBIOTICA [Concomitant]
     Active Substance: PROBIOTICS NOS
     Route: 065
  8. VITAMIN D [ERGOCALCIFEROL] [Concomitant]
     Active Substance: ERGOCALCIFEROL
     Route: 065
  9. BENADRYL [Concomitant]
     Active Substance: DIPHENHYDRAMINE HYDROCHLORIDE
     Indication: PREMEDICATION
     Dosage: 50 MILLIGRAM
     Route: 048
  10. BERBERIS [Concomitant]
     Dosage: GRANULES
     Route: 065
  11. DETROL LA [Concomitant]
     Active Substance: TOLTERODINE TARTRATE
     Route: 065
  12. IRON [Concomitant]
     Active Substance: IRON
     Indication: PRODUCT USED FOR UNKNOWN INDICATION
     Route: 065
  13. OMEGA 3 [DOCOSAHEXAENOIC ACID;EICOSAPENTAENOIC ACID] [Concomitant]
     Active Substance: DOCONEXENT\ICOSAPENT
     Route: 065
  14. SPIRULINA [SPIRULINA SPP.] [Concomitant]
     Route: 065
  15. TYLENOL [Concomitant]
     Active Substance: ACETAMINOPHEN
     Indication: PREMEDICATION
     Dosage: 650 MILLIGRAM
     Route: 048
  16. KRILL OIL [Concomitant]
     Active Substance: DIETARY SUPPLEMENT\KRILL OIL
     Route: 065
  17. PROZAC [Concomitant]
     Active Substance: FLUOXETINE HYDROCHLORIDE
     Route: 065
  18. ROBAXACET [Concomitant]
     Active Substance: ACETAMINOPHEN\METHOCARBAMOL
     Route: 065
  19. SOLU-MEDROL [Concomitant]
     Active Substance: METHYLPREDNISOLONE SODIUM SUCCINATE
     Indication: PREMEDICATION
     Dosage: 100 MILLIGRAM
     Route: 042
  20. ATIVAN [Concomitant]
     Active Substance: LORAZEPAM
     Route: 065
  21. ESTRACE [Concomitant]
     Active Substance: ESTRADIOL
     Route: 065
  22. FOSAMAX [Concomitant]
     Active Substance: ALENDRONATE SODIUM
     Route: 065
  23. PLAQUENIL [Concomitant]
     Active Substance: HYDROXYCHLOROQUINE SULFATE
     Route: 065
  24. PREVACID [Concomitant]
     Active Substance: LANSOPRAZOLE
     Route: 065
  25. ATIVAN [Concomitant]
     Active Substance: LORAZEPAM
     Route: 065
  26. CURCUMIN [Concomitant]
     Active Substance: CURCUMIN
     Route: 065
  27. PERINDOPRIL [Concomitant]
     Active Substance: PERINDOPRIL
     Route: 065
  28. TRAZODONE [Concomitant]
     Active Substance: TRAZODONE HYDROCHLORIDE
     Route: 065
  29. ZINC. [Concomitant]
     Active Substance: ZINC
     Route: 065

REACTIONS (1)
  - Colitis microscopic [Unknown]
